FAERS Safety Report 6678090-5 (Version None)
Quarter: 2010Q2

REPORT INFORMATION
  Report Type: 
  Country: None (occurrence: None)
  Receive Date: 20100412
  Receipt Date: 20100329
  Transmission Date: 20101027
  Serious: Yes (Life-Threatening)
  Sender: FDA-Public Use
  Company Number: NL-AMGEN-US393458

PATIENT
  Age: 57 Year
  Sex: Female

DRUGS (12)
  1. ENBREL [Suspect]
     Indication: DRUG USE FOR UNKNOWN INDICATION
     Dates: start: 20100126, end: 20100201
  2. ENBREL [Suspect]
     Dates: start: 20100216
  3. RASILEZ [Concomitant]
  4. HYDROCHLOROTHIAZIDE [Concomitant]
  5. COZAAR [Concomitant]
  6. CALCICHEW [Concomitant]
     Dosage: ONE TIME PER DAY
  7. LOSEC [Concomitant]
  8. FERO-GRAD [Concomitant]
     Dosage: ONE TIME ADMINSTRATION
  9. SERETIDE [Concomitant]
     Dosage: IF NECCESARY
  10. BUTAZOLIDIN [Concomitant]
     Dosage: IF NECCESARY
  11. SOTALOL HCL [Concomitant]
  12. PREDNISOLON [Concomitant]

REACTIONS (5)
  - HYPERTENSION [None]
  - NAUSEA [None]
  - PALPITATIONS [None]
  - VISION BLURRED [None]
  - VISUAL ACUITY REDUCED [None]
